FAERS Safety Report 24792417 (Version 1)
Quarter: 2024Q4

REPORT INFORMATION
  Report Type: Spontaneous
  Country: US (occurrence: US)
  Receive Date: 20241231
  Receipt Date: 20241231
  Transmission Date: 20250115
  Serious: No
  Sender: ROCHE
  Company Number: US-ROCHE-10000168838

PATIENT
  Age: 63 Year
  Sex: Male
  Weight: 51 kg

DRUGS (2)
  1. GAZYVA [Suspect]
     Active Substance: OBINUTUZUMAB
     Indication: Chronic lymphocytic leukaemia
     Dosage: ONE TIME ON CYCLE 1, DAY 1
     Route: 042
     Dates: start: 20241226
  2. GAZYVA [Suspect]
     Active Substance: OBINUTUZUMAB
     Dosage: ONE TIME ON CYCLE 1, DAY 2
     Route: 042
     Dates: start: 20241227

REACTIONS (2)
  - Product preparation error [Unknown]
  - No adverse event [Unknown]

NARRATIVE: CASE EVENT DATE: 20241227
